FAERS Safety Report 15285237 (Version 2)
Quarter: 2019Q1

REPORT INFORMATION
  Report Type: Report from Study
  Country: GB (occurrence: GB)
  Receive Date: 20180816
  Receipt Date: 20190228
  Transmission Date: 20190417
  Serious: Yes (Life-Threatening, Other)
  Sender: FDA-Public Use
  Company Number: GB-ELI_LILLY_AND_COMPANY-GB201808004307

PATIENT
  Age: 15 Year
  Sex: Male

DRUGS (1)
  1. SOMATROPIN. [Suspect]
     Active Substance: SOMATROPIN
     Indication: GROWTH HORMONE DEFICIENCY
     Dosage: UNK, UNKNOWN
     Route: 065

REACTIONS (5)
  - Pituitary haemorrhage [Recovering/Resolving]
  - Neoplasm progression [Unknown]
  - Prolactin-producing pituitary tumour [Unknown]
  - Optic nerve injury [Recovering/Resolving]
  - Diabetes insipidus [Recovered/Resolved]
